FAERS Safety Report 7170071-0 (Version None)
Quarter: 2010Q4

REPORT INFORMATION
  Report Type: 
  Country: None (occurrence: None)
  Receive Date: 20101214
  Receipt Date: 20101214
  Transmission Date: 20110411
  Serious: Yes (Life-Threatening, Hospitalization)
  Sender: FDA-Public Use
  Company Number: None

PATIENT
  Sex: Male
  Weight: 85 kg

DRUGS (2)
  1. TACROLIMUS [Suspect]
     Indication: HEART TRANSPLANT
     Dosage: 0.5MG Q12HRS PO
     Route: 048
     Dates: start: 20100527, end: 20101117
  2. TACROLIMUS [Suspect]
     Indication: HEART TRANSPLANT
     Dosage: 4MG  Q12HRS PO
     Route: 048
     Dates: start: 20100527, end: 20101117

REACTIONS (3)
  - DRUG LEVEL DECREASED [None]
  - PRODUCT SUBSTITUTION ISSUE [None]
  - TRANSPLANT REJECTION [None]
